FAERS Safety Report 18821524 (Version 6)
Quarter: 2021Q4

REPORT INFORMATION
  Report Type: Report from Study
  Country: US (occurrence: US)
  Receive Date: 20210201
  Receipt Date: 20211217
  Transmission Date: 20220304
  Serious: No
  Sender: FDA-Public Use
  Company Number: NVSC2021US023216

PATIENT
  Sex: Male

DRUGS (4)
  1. ENTRESTO [Suspect]
     Active Substance: SACUBITRIL\VALSARTAN
     Indication: Cardiac failure
     Dosage: UNK
     Route: 065
  2. VALSARTAN [Suspect]
     Active Substance: VALSARTAN
     Indication: Product used for unknown indication
     Dosage: UNK
     Route: 065
  3. CARVEDILOL [Suspect]
     Active Substance: CARVEDILOL
     Indication: Product used for unknown indication
     Dosage: UNK
     Route: 065
  4. DIGOXIN [Concomitant]
     Active Substance: DIGOXIN
     Indication: Product used for unknown indication
     Dosage: UNK
     Route: 065

REACTIONS (13)
  - Anxiety [Unknown]
  - Decreased appetite [Recovered/Resolved]
  - Swelling [Recovered/Resolved]
  - Insomnia [Unknown]
  - Weight decreased [Unknown]
  - Arthralgia [Unknown]
  - Stress [Unknown]
  - Frustration tolerance decreased [Unknown]
  - White coat hypertension [Unknown]
  - Rotator cuff syndrome [Unknown]
  - Blood pressure increased [Unknown]
  - Dizziness [Unknown]
  - Inappropriate schedule of product administration [Unknown]
